FAERS Safety Report 8848055 (Version 4)
Quarter: 2013Q1

REPORT INFORMATION
  Report Type: Report from Study
  Country: US (occurrence: US)
  Receive Date: 20121018
  Receipt Date: 20130205
  Transmission Date: 20140127
  Serious: Yes (Other)
  Sender: FDA-Public Use
  Company Number: US-ROCHE-1146587

PATIENT
  Age: 56 Year
  Sex: Female
  Weight: 85.81 kg

DRUGS (12)
  1. PEGASYS [Suspect]
     Indication: CHRONIC HEPATITIS C
     Route: 058
     Dates: start: 20120831, end: 20120907
  2. RIBASPHERE [Suspect]
     Indication: CHRONIC HEPATITIS C
     Route: 065
     Dates: start: 20120831, end: 20120907
  3. OS-CAL [Concomitant]
     Route: 048
  4. LORATADINE [Concomitant]
     Route: 048
  5. HCTZ [Concomitant]
     Route: 048
  6. PREVPAC [Concomitant]
  7. FLOVENT [Concomitant]
     Dosage: 2 PUFFS
     Route: 050
  8. PAROXETINE [Concomitant]
     Route: 048
  9. GABAPENTIN [Concomitant]
     Route: 048
  10. CLARITIN [Concomitant]
     Route: 065
  11. FLUCONAZOLE [Concomitant]
     Route: 065
  12. SEROQUEL [Concomitant]

REACTIONS (2)
  - Loss of consciousness [Recovered/Resolved]
  - Hypotension [Recovered/Resolved]
